FAERS Safety Report 24887195 (Version 1)
Quarter: 2025Q1

REPORT INFORMATION
  Report Type: Spontaneous
  Country: US (occurrence: US)
  Receive Date: 20250127
  Receipt Date: 20250127
  Transmission Date: 20250409
  Serious: No
  Sender: STALLERGENES
  Company Number: US-AIMMUNE THERAPEUTICS, INC.-2024AIMT01143

PATIENT
  Age: 13 Year
  Sex: Female

DRUGS (3)
  1. PALFORZIA [Suspect]
     Active Substance: PEANUT
     Indication: Food allergy
  2. PALFORZIA [Suspect]
     Active Substance: PEANUT
  3. PALFORZIA [Suspect]
     Active Substance: PEANUT

REACTIONS (1)
  - Gastrointestinal disorder [Unknown]
